FAERS Safety Report 6666515-0 (Version None)
Quarter: 2010Q2

REPORT INFORMATION
  Report Type: 
  Country: None (occurrence: None)
  Receive Date: 20100402
  Receipt Date: 20100325
  Transmission Date: 20101027
  Serious: Yes (Hospitalization)
  Sender: FDA-Public Use
  Company Number: US-GENENTECH-299721

PATIENT
  Sex: Female
  Weight: 58.957 kg

DRUGS (1)
  1. LUCENTIS [Suspect]
     Indication: RETINAL VEIN OCCLUSION
     Dosage: 0.05 ML, 1/MONTH
     Route: 031
     Dates: start: 20090924, end: 20100217

REACTIONS (2)
  - BRONCHITIS [None]
  - PNEUMONIA [None]
